FAERS Safety Report 5243874-7 (Version None)
Quarter: 2007Q1

REPORT INFORMATION
  Report Type: 
  Country: None (occurrence: None)
  Receive Date: 20070220
  Receipt Date: 20070220
  Transmission Date: 20070707
  Serious: Yes (Hospitalization)
  Sender: FDA-Public Use
  Company Number: None

PATIENT
  Age: 27 Year
  Sex: Male
  Weight: 129.2752 kg

DRUGS (2)
  1. REMICADE [Suspect]
     Indication: CROHN'S DISEASE
     Dosage: 650 MG ONCE IV
     Route: 042
     Dates: start: 20070202, end: 20070202
  2. REMICADE [Suspect]
     Indication: CROHN'S DISEASE
     Dosage: 650 MG ONCE IV
     Route: 042
     Dates: start: 20070216, end: 20070216

REACTIONS (5)
  - BLOOD PRESSURE ABNORMAL [None]
  - BURNING SENSATION [None]
  - CHEST DISCOMFORT [None]
  - DYSPNOEA [None]
  - FLUSHING [None]
